FAERS Safety Report 12689117 (Version 1)
Quarter: 2016Q3

REPORT INFORMATION
  Report Type: Spontaneous
  Country: BR (occurrence: BR)
  Receive Date: 20160826
  Receipt Date: 20160826
  Transmission Date: 20161109
  Serious: Yes (Other)
  Sender: FDA-Public Use
  Company Number: BR-AMGEN-BRASP2016112516

PATIENT
  Age: 64 Year
  Sex: Female

DRUGS (2)
  1. ENBREL [Suspect]
     Active Substance: ETANERCEPT
     Indication: PRODUCT USED FOR UNKNOWN INDICATION
     Dosage: (STRENGTH 50MG)
     Route: 065
     Dates: start: 201606
  2. ENBREL [Suspect]
     Active Substance: ETANERCEPT
     Dosage: (STRENGTH 50MG)
     Route: 065
     Dates: start: 201608

REACTIONS (3)
  - Pain [Unknown]
  - Mobility decreased [Not Recovered/Not Resolved]
  - Lumbar vertebral fracture [Unknown]

NARRATIVE: CASE EVENT DATE: 20160810
